FAERS Safety Report 10881451 (Version 1)
Quarter: 2015Q1

REPORT INFORMATION
  Report Type: Spontaneous
  Country: IT (occurrence: None)
  Receive Date: 20150226
  Receipt Date: 20150226
  Transmission Date: 20150721
  Serious: Yes (Other)
  Sender: FDA-Public Use
  Company Number: 2751523

PATIENT
  Age: 72 Year
  Sex: Female

DRUGS (2)
  1. OXALIPLATIN. [Suspect]
     Active Substance: OXALIPLATIN
     Indication: ADENOCARCINOMA OF COLON
     Dosage: 130 MG/M2 MILLIGRAM(S)/SQ. METER (CYCLICAL) INTRAVENTOUS (NOT OTHERWISE SPECIIFED)
     Route: 042
     Dates: start: 20130409, end: 20131002
  2. CAPECITABINE. [Concomitant]
     Active Substance: CAPECITABINE

REACTIONS (6)
  - Laryngospasm [None]
  - Musculoskeletal stiffness [None]
  - Agitation [None]
  - Dysarthria [None]
  - Dyspnoea [None]
  - Muscle spasms [None]

NARRATIVE: CASE EVENT DATE: 20131002
